FAERS Safety Report 25078180 (Version 1)
Quarter: 2025Q1

REPORT INFORMATION
  Report Type: Spontaneous
  Country: US (occurrence: None)
  Receive Date: 20250313
  Receipt Date: 20250313
  Transmission Date: 20250408
  Serious: Yes (unspecified)
  Sender: FDA-CTU
  Company Number: None

PATIENT
  Age: 64 Year
  Sex: Male

DRUGS (1)
  1. CARVYKTI [Suspect]
     Active Substance: CILTACABTAGENE AUTOLEUCEL

REACTIONS (6)
  - Infusion related reaction [None]
  - Cytopenia [None]
  - Anaemia [None]
  - Neutropenia [None]
  - Thrombocytopenia [None]
  - Lymphopenia [None]

NARRATIVE: CASE EVENT DATE: 20250217
